FAERS Safety Report 8615511-2 (Version None)
Quarter: 2012Q3

REPORT INFORMATION
  Report Type: 
  Country: None (occurrence: None)
  Receive Date: 20120823
  Receipt Date: 20120724
  Transmission Date: 20120928
  Serious: Yes (Other)
  Sender: FDA-Public Use
  Company Number: US-JNJFOC-20120803848

PATIENT
  Age: 31 Year
  Sex: Female

DRUGS (9)
  1. HYDROXYZINE [Concomitant]
     Route: 065
  2. DOXEPIN [Concomitant]
     Route: 065
  3. CETIRIZINE HYDROCHLORIDE [Suspect]
     Indication: ASTHMA
     Route: 065
  4. FAMOTIDINE [Concomitant]
     Route: 065
  5. CETIRIZINE HYDROCHLORIDE [Suspect]
     Indication: RHINITIS ALLERGIC
     Route: 065
  6. MONTELUKAST [Suspect]
     Indication: RHINITIS ALLERGIC
     Route: 065
  7. MONTELUKAST [Suspect]
     Indication: ASTHMA
     Route: 065
  8. DIPHENHYDRAMINE HYDROCHLORIDE [Concomitant]
     Route: 065
  9. DEXAMETHASONE [Concomitant]
     Route: 065

REACTIONS (6)
  - HYPERTENSION [None]
  - BREAST ADENOMA [None]
  - OFF LABEL USE [None]
  - HEPATIC MASS [None]
  - URTICARIA [None]
  - HYPOTHYROIDISM [None]
